FAERS Safety Report 10630175 (Version 1)
Quarter: 2014Q4

REPORT INFORMATION
  Report Type: Spontaneous
  Country: US (occurrence: US)
  Receive Date: 20141205
  Receipt Date: 20141205
  Transmission Date: 20150529
  Serious: No
  Sender: FDA-Public Use
  Company Number: US-BRISTOL-MYERS SQUIBB COMPANY-21018957

PATIENT
  Age: 72 Year
  Sex: Female
  Weight: 113.38 kg

DRUGS (12)
  1. VYTORIN [Concomitant]
     Active Substance: EZETIMIBE\SIMVASTATIN
     Dosage: 1DF=10-40MG
  2. BYDUREON [Suspect]
     Active Substance: EXENATIDE
     Indication: TYPE 2 DIABETES MELLITUS
     Route: 058
     Dates: start: 20140513
  3. ZITHROMAX [Concomitant]
     Active Substance: AZITHROMYCIN DIHYDRATE
  4. GLYBURIDE. [Concomitant]
     Active Substance: GLYBURIDE
  5. ALLOPURINOL. [Concomitant]
     Active Substance: ALLOPURINOL
  6. AMLODIPINE [Concomitant]
     Active Substance: AMLODIPINE BESYLATE
  7. BENAZEPRIL HCL [Concomitant]
     Active Substance: BENAZEPRIL HYDROCHLORIDE
     Dosage: 1DF=5-20MG
  8. METFORMIN HCL [Suspect]
     Active Substance: METFORMIN HYDROCHLORIDE
     Indication: TYPE 2 DIABETES MELLITUS
  9. INDOCIN [Concomitant]
     Active Substance: INDOMETHACIN\INDOMETHACIN SODIUM
  10. CLOPIDOGREL + ACETYLSALICYLIC ACID [Concomitant]
     Active Substance: ASPIRIN\CLOPIDOGREL BISULFATE
  11. DOXEPIN [Concomitant]
     Active Substance: DOXEPIN
  12. PREVALITE [Concomitant]
     Active Substance: CHOLESTYRAMINE
     Dosage: WITH JUICE BEFORE SHE EATS

REACTIONS (6)
  - Nasopharyngitis [Unknown]
  - Weight decreased [Unknown]
  - Gout [Unknown]
  - Dyspepsia [Unknown]
  - Blood glucose abnormal [Unknown]
  - Decreased appetite [Unknown]

NARRATIVE: CASE EVENT DATE: 2014
